FAERS Safety Report 21970310 (Version 2)
Quarter: 2023Q1

REPORT INFORMATION
  Report Type: Spontaneous
  Country: US (occurrence: None)
  Receive Date: 20230209
  Receipt Date: 20230301
  Transmission Date: 20230417
  Serious: No
  Sender: FDA-Public Use
  Company Number: 2023A024459

PATIENT
  Sex: Female

DRUGS (1)
  1. SYMBICORT [Suspect]
     Active Substance: BUDESONIDE\FORMOTEROL FUMARATE DIHYDRATE
     Indication: Pulmonary vein occlusion
     Dosage: 80 MCG, 120 INHALATION, 2 PUFFS 2 TIMES A DAY
     Route: 055
     Dates: start: 20230103

REACTIONS (5)
  - Dyspnoea [Not Recovered/Not Resolved]
  - Device use issue [Unknown]
  - Off label use [Unknown]
  - Wrong technique in device usage process [Unknown]
  - Intentional product misuse [Unknown]
